FAERS Safety Report 11658023 (Version 9)
Quarter: 2016Q3

REPORT INFORMATION
  Report Type: Report from Study
  Country: GR (occurrence: GR)
  Receive Date: 20151023
  Receipt Date: 20160923
  Transmission Date: 20161109
  Serious: Yes (Other)
  Sender: FDA-Public Use
  Company Number: GR-B.I. PHARMACEUTICALS,INC./RIDGEFIELD-2015-BI-56920BI

PATIENT
  Age: 60 Year
  Sex: Male
  Weight: 68 kg

DRUGS (1)
  1. GILOTRIF [Suspect]
     Active Substance: AFATINIB
     Indication: OROPHARYNGEAL CANCER
     Dosage: 10 MG
     Route: 048
     Dates: start: 20150202

REACTIONS (2)
  - Squamous cell carcinoma of skin [Recovered/Resolved]
  - Carbuncle [Recovered/Resolved]

NARRATIVE: CASE EVENT DATE: 20150328
